FAERS Safety Report 7314335-6 (Version None)
Quarter: 2011Q1

REPORT INFORMATION
  Report Type: 
  Country: None (occurrence: None)
  Receive Date: 20110225
  Receipt Date: 20100723
  Transmission Date: 20110831
  Serious: No
  Sender: FDA-Public Use
  Company Number: US-MYLANLABS-2010S1013425

PATIENT
  Age: 18 Year
  Sex: Female

DRUGS (5)
  1. AMNESTEEM [Suspect]
     Indication: ACNE
     Route: 048
     Dates: start: 20100209, end: 20100622
  2. INSULIN [Concomitant]
  3. ORAL CONTRACEPTIVE NOS [Concomitant]
  4. LAMICTAL [Concomitant]
  5. CLARAVIS [Suspect]
     Indication: ACNE
     Route: 048
     Dates: start: 20100111, end: 20100208

REACTIONS (1)
  - DRY EYE [None]
